FAERS Safety Report 6000725-0 (Version None)
Quarter: 2008Q4

REPORT INFORMATION
  Report Type: 
  Country: None (occurrence: None)
  Receive Date: 20081215
  Receipt Date: 20081209
  Transmission Date: 20090506
  Serious: Yes (Death, Life-Threatening, Hospitalization, Other)
  Sender: FDA-Public Use
  Company Number: US-BAYER-200318643BWH

PATIENT
  Age: 24 Year
  Sex: Female

DRUGS (5)
  1. AVELOX [Suspect]
     Indication: BRONCHITIS
     Route: 048
     Dates: start: 20030515, end: 20030517
  2. ORAL CONTRACEPTIVE PILLS [Concomitant]
  3. DILAUDID [Concomitant]
  4. ATIVAN [Concomitant]
  5. LACTULOSE [Concomitant]

REACTIONS (18)
  - ABDOMINAL PAIN [None]
  - ACUTE RESPIRATORY DISTRESS SYNDROME [None]
  - CARDIAC ARREST [None]
  - COAGULOPATHY [None]
  - COMA [None]
  - HEPATIC ENCEPHALOPATHY [None]
  - HEPATIC ENZYME INCREASED [None]
  - HEPATIC NECROSIS [None]
  - HEPATITIS FULMINANT [None]
  - INCOHERENT [None]
  - JAUNDICE [None]
  - MULTI-ORGAN FAILURE [None]
  - NAUSEA [None]
  - RASH MACULAR [None]
  - RENAL FAILURE [None]
  - RENAL TUBULAR NECROSIS [None]
  - TOXIC EPIDERMAL NECROLYSIS [None]
  - VOMITING [None]
